FAERS Safety Report 7474720-9 (Version None)
Quarter: 2011Q2

REPORT INFORMATION
  Report Type: 
  Country: None (occurrence: None)
  Receive Date: 20110509
  Receipt Date: 20110509
  Transmission Date: 20111010
  Serious: Yes (Hospitalization)
  Sender: FDA-Public Use
  Company Number: None

PATIENT
  Sex: Male
  Weight: 81.65 kg

DRUGS (10)
  1. CASODEX [Suspect]
     Dosage: 6000 MG
  2. FLUTAMIDE [Suspect]
     Dosage: 75.6 MG
  3. XALATAN [Concomitant]
  4. IBUPROFEN [Concomitant]
  5. LISINOPRIL [Concomitant]
  6. CALCIUM WITH VITAMIN D [Concomitant]
  7. HYDROCODONE BITARTRATE AND ACETAMINOPHEN [Concomitant]
  8. OMEPRAZOLE [Concomitant]
  9. CARISOPRODOL [Concomitant]
  10. MULTIVITAMIN/HYDROCHLOROTHIAZIDE [Concomitant]

REACTIONS (3)
  - CORONARY ARTERY DISEASE [None]
  - ANGINA PECTORIS [None]
  - HYPERLIPIDAEMIA [None]
